FAERS Safety Report 8182275-9 (Version None)
Quarter: 2012Q1

REPORT INFORMATION
  Report Type: 
  Country: None (occurrence: None)
  Receive Date: 20120302
  Receipt Date: 20120227
  Transmission Date: 20120608
  Serious: Yes (Death, Hospitalization)
  Sender: FDA-Public Use
  Company Number: PHHY2010US82173

PATIENT
  Sex: Male

DRUGS (2)
  1. EXJADE [Suspect]
     Indication: IRON OVERLOAD
     Dosage: 500 MG, DAILY
     Route: 048
  2. EXJADE [Suspect]
     Dosage: 1000 MG, QD
     Route: 048

REACTIONS (2)
  - DEATH [None]
  - ACUTE MYELOID LEUKAEMIA [None]
